FAERS Safety Report 24393310 (Version 1)
Quarter: 2024Q4

REPORT INFORMATION
  Report Type: Spontaneous
  Country: US (occurrence: US)
  Receive Date: 20241003
  Receipt Date: 20241003
  Transmission Date: 20250115
  Serious: No
  Sender: HARMONY BIOSCIENCES
  Company Number: US-HARMONY BIOSCIENCES-2023HMY01615

PATIENT

DRUGS (1)
  1. WAKIX [Suspect]
     Active Substance: PITOLISANT HYDROCHLORIDE
     Dosage: 17.8 MG
     Route: 065
     Dates: start: 2023, end: 2023

REACTIONS (2)
  - Fall [Unknown]
  - Nocturia [Unknown]

NARRATIVE: CASE EVENT DATE: 20230101
